FAERS Safety Report 5098584-6 (Version None)
Quarter: 2006Q3

REPORT INFORMATION
  Report Type: 
  Country: None (occurrence: None)
  Receive Date: 20060906
  Receipt Date: 20060309
  Transmission Date: 20061208
  Serious: No
  Sender: FDA-Public Use
  Company Number: US-GLAXOSMITHKLINE-A0596939A

PATIENT
  Sex: Female

DRUGS (5)
  1. REQUIP [Suspect]
     Indication: RESTLESS LEGS SYNDROME
     Route: 048
     Dates: start: 20050101
  2. THYROID TAB [Concomitant]
  3. KLONOPIN [Concomitant]
  4. AMITRIPTYLINE HCL [Concomitant]
  5. AMBIEN [Concomitant]

REACTIONS (5)
  - CONFUSIONAL STATE [None]
  - DIZZINESS [None]
  - GAIT DISTURBANCE [None]
  - INSOMNIA [None]
  - NAUSEA [None]
